FAERS Safety Report 6194027-X (Version None)
Quarter: 2009Q2

REPORT INFORMATION
  Report Type: 
  Country: None (occurrence: None)
  Receive Date: 20090518
  Receipt Date: 20090506
  Transmission Date: 20091009
  Serious: Yes (Hospitalization, Other)
  Sender: FDA-Public Use
  Company Number: US-PFIZER INC-2009211378

PATIENT
  Sex: Male
  Weight: 97.522 kg

DRUGS (1)
  1. CHANTIX [Suspect]
     Dates: start: 20090401

REACTIONS (7)
  - AGITATION [None]
  - FEELING ABNORMAL [None]
  - HEAD INJURY [None]
  - HOSTILITY [None]
  - INCOHERENT [None]
  - INJURY [None]
  - SELF INJURIOUS BEHAVIOUR [None]
